FAERS Safety Report 5402075-X (Version None)
Quarter: 2007Q3

REPORT INFORMATION
  Report Type: 
  Country: None (occurrence: None)
  Receive Date: 20070727
  Receipt Date: 20060828
  Transmission Date: 20080115
  Serious: Yes (Hospitalization)
  Sender: FDA-Public Use
  Company Number: THYM-11042

PATIENT
  Age: 53 Year
  Sex: Male
  Weight: 125.7 kg

DRUGS (14)
  1. THYMOGLOBULIN [Suspect]
     Indication: LIVER TRANSPLANT
     Dosage: 190 MG QD IV
     Route: 042
     Dates: start: 20060818, end: 20060821
  2. ACETAMINOPHEN [Concomitant]
  3. CLONIDINE [Concomitant]
  4. HYDROMORPHONE HCL [Concomitant]
  5. ONDANSETRON [Concomitant]
  6. VALGANCICLOVIR HCL [Concomitant]
  7. LANSOPRAZOLE [Concomitant]
  8. SULFAMETHOXAZOLE [Concomitant]
  9. ACETAMINOPHEN AND OXYCODONE HCL [Concomitant]
  10. REGULAR INSULIN [Concomitant]
  11. HUMAN INSULIN GLARGINE [Concomitant]
  12. LIDOCAINE [Concomitant]
  13. MYCOPHENOLATE MOFETIL [Concomitant]
  14. TACROLIMUS [Concomitant]

REACTIONS (1)
  - SERUM SICKNESS [None]
